FAERS Safety Report 4898526-X (Version None)
Quarter: 2006Q1

REPORT INFORMATION
  Report Type: 
  Country: None (occurrence: None)
  Receive Date: 20060131
  Receipt Date: 20060131
  Transmission Date: 20060701
  Serious: Yes (Other)
  Sender: FDA-Public Use
  Company Number: None

PATIENT
  Age: 36 Year
  Sex: Female
  Weight: 108.8633 kg

DRUGS (2)
  1. GEODON [Suspect]
     Indication: PARANOIA
     Dosage: PO 80 MG BID
     Route: 047
     Dates: start: 20050501, end: 20060101
  2. GEODON [Suspect]
     Indication: SCHIZOPHRENIA
     Dosage: PO 80 MG BID
     Route: 047
     Dates: start: 20050501, end: 20060101

REACTIONS (3)
  - CONDITION AGGRAVATED [None]
  - OCULOGYRATION [None]
  - PARANOIA [None]
